FAERS Safety Report 8461306-2 (Version None)
Quarter: 2012Q2

REPORT INFORMATION
  Report Type: 
  Country: None (occurrence: None)
  Receive Date: 20120620
  Receipt Date: 20120620
  Transmission Date: 20120825
  Serious: Yes (Other)
  Sender: FDA-Public Use
  Company Number: None

PATIENT
  Sex: Female
  Weight: 57.6068 kg

DRUGS (1)
  1. SIMVASTATIN [Suspect]
     Indication: BLOOD CHOLESTEROL ABNORMAL
     Dosage: 1 PER DAY DAILY ORAL
     Route: 048
     Dates: start: 20000101, end: 20120101

REACTIONS (2)
  - HYPERSENSITIVITY [None]
  - URTICARIA [None]
